FAERS Safety Report 14985982 (Version 1)
Quarter: 2018Q2

REPORT INFORMATION
  Report Type: Spontaneous
  Country: None (occurrence: DE)
  Receive Date: 20180607
  Receipt Date: 20180607
  Transmission Date: 20180711
  Serious: Yes (Congenital Anomaly)
  Sender: FDA-Public Use
  Company Number: DE-BAUSCH-BL-2018-016082

PATIENT
  Sex: Male
  Weight: 3.92 kg

DRUGS (6)
  1. IBUPROFEN. [Suspect]
     Active Substance: IBUPROFEN
     Indication: PRODUCT USED FOR UNKNOWN INDICATION
     Dosage: GESTATIONAL WEEK OF EXPOSURE: 0-27
     Route: 064
  2. PARACETAMOL [Suspect]
     Active Substance: ACETAMINOPHEN
     Indication: PRODUCT USED FOR UNKNOWN INDICATION
     Dosage: GESTATIONAL WEEK OF EXPOSURE- 0-4
     Route: 064
  3. LEVOTHYROXINE. [Suspect]
     Active Substance: LEVOTHYROXINE
     Indication: PRODUCT USED FOR UNKNOWN INDICATION
     Dosage: GESTATIONAL WEEK OF EXPOSURE- 0-27
     Route: 064
  4. LYNESTRENOL [Suspect]
     Active Substance: LYNESTRENOL
     Indication: PRODUCT USED FOR UNKNOWN INDICATION
     Dosage: GESTATIONAL WEEK 0-4
     Route: 064
  5. DICLOFENAC [Suspect]
     Active Substance: DICLOFENAC
     Indication: PAIN
     Dosage: GESTATIONAL WEEK OF EXPOSURE- 0-27 PLUS 1; AS NECESSARY (PRN)
     Route: 064
  6. OMEPRAZOLE. [Suspect]
     Active Substance: OMEPRAZOLE
     Indication: PRODUCT USED FOR UNKNOWN INDICATION
     Dosage: GESTATIONAL WEEK OF EXPOSURE 0-4
     Route: 064

REACTIONS (7)
  - Macrocephaly [Unknown]
  - Pupils unequal [Unknown]
  - Cerebral atrophy [Unknown]
  - Splenomegaly [Unknown]
  - Atrial septal defect [Unknown]
  - Pyloric stenosis [Unknown]
  - Foetal exposure during pregnancy [Unknown]
